FAERS Safety Report 24395023 (Version 3)
Quarter: 2024Q4

REPORT INFORMATION
  Report Type: Spontaneous
  Country: FR (occurrence: FR)
  Receive Date: 20241004
  Receipt Date: 20241018
  Transmission Date: 20250115
  Serious: Yes (Other)
  Sender: AUROBINDO
  Company Number: FR-ROCHE-10000080378

PATIENT
  Age: 61 Year
  Sex: Male
  Weight: 72 kg

DRUGS (58)
  1. DOXORUBICIN [Suspect]
     Active Substance: DOXORUBICIN
     Indication: Diffuse large B-cell lymphoma
     Dosage: 96.6 MILLIGRAM, EVERY 3 WEEKS
     Route: 042
     Dates: start: 20240606
  2. PREDNISONE [Suspect]
     Active Substance: PREDNISONE
     Indication: Diffuse large B-cell lymphoma
     Dosage: 80 MILLIGRAM, EVERY 3 WEEKS
     Route: 048
     Dates: start: 20240606
  3. CYCLOPHOSPHAMIDE [Suspect]
     Active Substance: CYCLOPHOSPHAMIDE
     Indication: Diffuse large B-cell lymphoma
     Dosage: 1448 MILLIGRAM, EVERY 3 WEEKS
     Route: 042
     Dates: start: 20240606
  4. POLATUZUMAB VEDOTIN [Suspect]
     Active Substance: POLATUZUMAB VEDOTIN
     Indication: Diffuse large B-cell lymphoma
     Dosage: 136 MILLIGRAM, EVERY 3 WEEKS
     Route: 042
     Dates: start: 20240606
  5. RITUXIMAB [Suspect]
     Active Substance: RITUXIMAB
     Indication: Diffuse large B-cell lymphoma
     Dosage: 724 MILLIGRAM, EVERY 3 WEEKS
     Route: 042
     Dates: start: 20240606
  6. VALACYCLOVIR HYDROCHLORIDE [Concomitant]
     Active Substance: VALACYCLOVIR HYDROCHLORIDE
     Indication: Antiviral prophylaxis
     Dosage: 500 MILLIGRAM, TWO TIMES A DAY (GIVEN FOR PROPHYLAXIS IS YES)
     Route: 048
     Dates: start: 20240607
  7. METHYLPREDNISOLONE [Concomitant]
     Active Substance: METHYLPREDNISOLONE
     Indication: Product used for unknown indication
     Dosage: UNK
     Route: 042
     Dates: start: 20240604
  8. ONDANSETRON [Concomitant]
     Active Substance: ONDANSETRON
     Indication: Nausea
     Dosage: 8 MILLIGRAM, TWO TIMES A DAY (GIVEN FOR PROPHYLAXIS IS YES)
     Route: 042
     Dates: start: 20240606, end: 20240606
  9. ONDANSETRON [Concomitant]
     Active Substance: ONDANSETRON
     Dosage: 8 MILLIGRAM, ONCE A DAY (GIVEN FOR PROPHYLAXIS IS YES)
     Route: 048
     Dates: start: 20240607, end: 20240607
  10. ONDANSETRON [Concomitant]
     Active Substance: ONDANSETRON
     Dosage: 8 MILLIGRAM, ONCE A DAY (GIVEN FOR PROPHYLAXIS IS YES)
     Route: 042
     Dates: start: 20240626, end: 20240627
  11. ONDANSETRON [Concomitant]
     Active Substance: ONDANSETRON
     Dosage: 8 MILLIGRAM, ONCE A DAY (GIVEN FOR PROPHYLAXIS IS YES)
     Route: 042
     Dates: start: 20240718, end: 20240718
  12. ONDANSETRON [Concomitant]
     Active Substance: ONDANSETRON
     Dosage: 8 MILLIGRAM, ONCE A DAY (GIVEN FOR PROPHYLAXIS IS YES)
     Route: 042
     Dates: start: 20240808
  13. APREPITANT [Concomitant]
     Active Substance: APREPITANT
     Indication: Nausea
     Dosage: 80 MILLIGRAM, ONCE A DAY (GIVEN FOR PROPHYLAXIS IS YES)
     Route: 048
     Dates: start: 20240607, end: 20240607
  14. APREPITANT [Concomitant]
     Active Substance: APREPITANT
     Dosage: 125 MILLIGRAM, ONCE A DAY
     Route: 048
     Dates: start: 20240626, end: 20240626
  15. APREPITANT [Concomitant]
     Active Substance: APREPITANT
     Dosage: 80 MILLIGRAM, ONCE A DAY (GIVEN FOR PROPHYLAXIS IS YES)
     Route: 048
     Dates: start: 20240627, end: 20240627
  16. APREPITANT [Concomitant]
     Active Substance: APREPITANT
     Dosage: 125 MILLIGRAM, ONCE A DAY
     Route: 065
     Dates: start: 20240808
  17. TINZAPARIN SODIUM [Concomitant]
     Active Substance: TINZAPARIN SODIUM
     Indication: Product used for unknown indication
     Dosage: 14000 INTERNATIONAL UNIT, ONCE A DAY (GIVEN FOR PROPHYLAXIS IS YES)
     Route: 058
     Dates: start: 20240604
  18. LEUCOVORIN [Concomitant]
     Active Substance: LEUCOVORIN\LEUCOVORIN CALCIUM
     Indication: Bone marrow failure
     Dosage: 25 MILLIGRAM, EVERY WEEK (GIVEN FOR PROPHYLAXIS IS YES)
     Route: 048
     Dates: start: 20240607
  19. FILGRASTIM [Concomitant]
     Active Substance: FILGRASTIM
     Indication: Prophylaxis
     Dosage: 48000 INTERNATIONAL UNIT, ONCE A DAY (GIVEN FOR PROPHYLAXIS IS YES)
     Route: 058
     Dates: start: 20240611, end: 20240615
  20. FILGRASTIM [Concomitant]
     Active Substance: FILGRASTIM
     Dosage: 30000 INTERNATIONAL UNIT, ONCE A DAY
     Route: 058
     Dates: start: 20240701, end: 20240706
  21. FILGRASTIM [Concomitant]
     Active Substance: FILGRASTIM
     Dosage: 30000 INTERNATIONAL UNIT, ONCE A DAY
     Route: 058
     Dates: start: 20240723, end: 20240727
  22. FILGRASTIM [Concomitant]
     Active Substance: FILGRASTIM
     Dosage: 48000 INTERNATIONAL UNIT, ONCE A DAY (GIVEN FOR PROPHYLAXIS IS YES)
     Route: 058
     Dates: start: 20240813
  23. LOCOID [Concomitant]
     Active Substance: HYDROCORTISONE BUTYRATE
     Indication: Guttate psoriasis
     Dosage: UNK UNK, AS NECESSARY
     Route: 061
  24. DEXCHLORPHENIRAMINE [Concomitant]
     Active Substance: DEXCHLORPHENIRAMINE
     Indication: Product used for unknown indication
     Dosage: 5 MILLIGRAM, ONCE A DAY
     Route: 042
     Dates: start: 20240606, end: 20240606
  25. DEXCHLORPHENIRAMINE [Concomitant]
     Active Substance: DEXCHLORPHENIRAMINE
     Dosage: 5 MILLIGRAM, ONCE A DAY
     Route: 042
     Dates: start: 20240626, end: 20240626
  26. DEXCHLORPHENIRAMINE [Concomitant]
     Active Substance: DEXCHLORPHENIRAMINE
     Dosage: 5 MILLIGRAM, ONCE A DAY
     Route: 042
     Dates: start: 20240718, end: 20240718
  27. DEXCHLORPHENIRAMINE [Concomitant]
     Active Substance: DEXCHLORPHENIRAMINE
     Dosage: 5 MILLIGRAM, ONCE A DAY
     Route: 042
     Dates: start: 20240808
  28. MESNA [Concomitant]
     Active Substance: MESNA
     Indication: Urinary tract disorder prophylaxis
     Dosage: 485 MILLIGRAM, ONCE A DAY (GIVEN FOR PROPHYLAXIS IS YES)
     Route: 065
     Dates: start: 20240606, end: 20240606
  29. MESNA [Concomitant]
     Active Substance: MESNA
     Dosage: 500 MILLIGRAM, ONCE A DAY (GIVEN FOR PROPHYLAXIS IS YES)
     Route: 042
     Dates: start: 20240607, end: 20240607
  30. MESNA [Concomitant]
     Active Substance: MESNA
     Dosage: 970 MILLIGRAM, TWO TIMES A DAY
     Route: 048
     Dates: start: 20240627, end: 20240627
  31. MESNA [Concomitant]
     Active Substance: MESNA
     Dosage: 485 MILLIGRAM, ONCE A DAY (GIVEN FOR PROPHYLAXIS IS YES)
     Route: 065
     Dates: start: 20240627, end: 20240627
  32. MESNA [Concomitant]
     Active Substance: MESNA
     Dosage: 970 MILLIGRAM, TWO TIMES A DAY
     Route: 048
     Dates: start: 20240718, end: 20240718
  33. MESNA [Concomitant]
     Active Substance: MESNA
     Dosage: 485 MILLIGRAM, ONCE A DAY (GIVEN FOR PROPHYLAXIS IS YES)
     Route: 065
     Dates: start: 20240718, end: 20240718
  34. MESNA [Concomitant]
     Active Substance: MESNA
     Dosage: 485 MILLIGRAM, ONCE A DAY (GIVEN FOR PROPHYLAXIS IS YES)
     Route: 065
     Dates: start: 20240808, end: 20240808
  35. MESNA [Concomitant]
     Active Substance: MESNA
     Dosage: 970 MILLIGRAM, TWO TIMES A DAY
     Route: 048
     Dates: start: 20240808
  36. ACETAMINOPHEN [Concomitant]
     Active Substance: ACETAMINOPHEN
     Indication: Pain
     Dosage: 1 GRAM, ONCE A DAY
     Route: 048
     Dates: start: 20240606, end: 20240606
  37. ACETAMINOPHEN [Concomitant]
     Active Substance: ACETAMINOPHEN
     Dosage: 100 MILLILITER, ONCE A DAY
     Route: 042
     Dates: start: 20240626, end: 20240626
  38. ACETAMINOPHEN [Concomitant]
     Active Substance: ACETAMINOPHEN
     Dosage: 1 GRAM, ONCE A DAY
     Route: 042
     Dates: start: 20240718, end: 20240718
  39. ACETAMINOPHEN [Concomitant]
     Active Substance: ACETAMINOPHEN
     Dosage: 1 GRAM, ONCE A DAY
     Route: 042
     Dates: start: 20240808
  40. FUNGIZONE [Concomitant]
     Active Substance: AMPHOTERICIN B
     Indication: Oral candidiasis
     Dosage: UNK UNK, ONCE A DAY
     Route: 048
     Dates: start: 20240808
  41. FUROSEMIDE [Concomitant]
     Active Substance: FUROSEMIDE
     Indication: Hypertension
     Dosage: 10 MILLIGRAM, ONCE A DAY (GIVEN FOR PROPHYLAXIS IS YES)
     Route: 065
     Dates: start: 20240604, end: 20240604
  42. RASBURICASE [Concomitant]
     Active Substance: RASBURICASE
     Indication: Tumour lysis syndrome
     Dosage: 7.5 MILLIGRAM, ONCE A DAY (GIVEN FOR PROPHYLAXIS IS YES)
     Route: 065
     Dates: start: 20240604, end: 20240604
  43. RASBURICASE [Concomitant]
     Active Substance: RASBURICASE
     Dosage: 7.5 MILLIGRAM, ONCE A DAY (GIVEN FOR PROPHYLAXIS IS YES)
     Route: 065
     Dates: start: 20240606
  44. SULFAMETHOXAZOLE [Concomitant]
     Active Substance: SULFAMETHOXAZOLE
     Indication: Product used for unknown indication
     Dosage: 960 MILLIGRAM, ONCE A DAY (GIVEN FOR PROPHYLAXIS IS YES)
     Route: 048
     Dates: start: 20240607, end: 20240607
  45. OXOMEMAZINE [Concomitant]
     Active Substance: OXOMEMAZINE
     Indication: Cough
     Dosage: 10 MILLILITER, FOUR TIMES/DAY
     Route: 048
  46. NERISONE [Concomitant]
     Active Substance: DIFLUCORTOLONE VALERATE
     Indication: Eczema
     Dosage: UNK UNK, ONCE A DAY
     Route: 061
     Dates: start: 20240718
  47. TRAMADOL [Concomitant]
     Active Substance: TRAMADOL
     Indication: Pain
     Dosage: 50 MILLIGRAM, FOUR TIMES/DAY
  48. ACETAMINOPHEN\OPIUM [Concomitant]
     Active Substance: ACETAMINOPHEN\OPIUM
     Indication: Headache
     Dosage: UNK
     Route: 048
  49. PANTOPRAZOLE [Concomitant]
     Active Substance: PANTOPRAZOLE
     Indication: Gastrooesophageal reflux disease
     Dosage: 40 MILLIGRAM, ONCE A DAY
     Route: 048
  50. CHOLECALCIFEROL [Concomitant]
     Active Substance: CHOLECALCIFEROL
     Indication: Vitamin D deficiency
     Dosage: 50000 INTERNATIONAL UNIT, EVERY WEEK
     Route: 048
  51. LANSOPRAZOLE [Concomitant]
     Active Substance: LANSOPRAZOLE
     Indication: Gastrooesophageal reflux disease
     Dosage: 15 MILLIGRAM, ONCE A DAY (GIVEN FOR PROPHYLAXIS IS YES)
     Route: 048
     Dates: start: 20240604
  52. PRIMPERAN [Concomitant]
     Active Substance: METOCLOPRAMIDE HYDROCHLORIDE
     Indication: Product used for unknown indication
     Dosage: 30 MILLIGRAM, AS NECESSARY
     Route: 048
     Dates: start: 20240829
  53. SODIUM BICARBONATE [Concomitant]
     Active Substance: SODIUM BICARBONATE
     Indication: Product used for unknown indication
     Dosage: UNK, 3 TIMES A DAY
     Route: 048
     Dates: start: 20240829
  54. ONDANSETRON [Concomitant]
     Active Substance: ONDANSETRON
     Indication: Product used for unknown indication
     Dosage: 8 MILLIGRAM, TWO TIMES A DAY
     Route: 048
     Dates: start: 20240829
  55. EMEND [Concomitant]
     Active Substance: APREPITANT
     Indication: Product used for unknown indication
     Dosage: 125 MILLIGRAM, ONCE A DAY
     Route: 048
     Dates: start: 20240829, end: 20240829
  56. EMEND [Concomitant]
     Active Substance: APREPITANT
     Dosage: 8 MILLIGRAM, ONCE A DAY
     Route: 048
     Dates: start: 20240830
  57. ELIQUIS [Concomitant]
     Active Substance: APIXABAN
     Indication: Pulmonary embolism
     Dosage: 10 MILLIGRAM, ONCE A DAY
     Route: 048
     Dates: start: 20240827
  58. INNOHEP [Concomitant]
     Active Substance: TINZAPARIN SODIUM
     Indication: Pulmonary embolism
     Dosage: 12600 INTERNATIONAL UNIT, ONCE A DAY
     Route: 058
     Dates: start: 20240828

REACTIONS (1)
  - Febrile neutropenia [Recovered/Resolved]

NARRATIVE: CASE EVENT DATE: 20240908
